FAERS Safety Report 5999886-9 (Version None)
Quarter: 2008Q4

REPORT INFORMATION
  Report Type: 
  Country: None (occurrence: None)
  Receive Date: 20081215
  Receipt Date: 20081203
  Transmission Date: 20090506
  Serious: Yes (Death)
  Sender: FDA-Public Use
  Company Number: FI-AVENTIS-200816616EU

PATIENT
  Age: 62 Year
  Sex: Female

DRUGS (3)
  1. KLEXANE                            /01708202/ [Suspect]
     Indication: THROMBOSIS PROPHYLAXIS
     Dosage: DOSE: UNK
     Route: 058
  2. HEPARIN NOS [Suspect]
     Dosage: DOSE: UNK
  3. IMMUNOSUPPRESSIVE AGENTS [Concomitant]
     Indication: RENAL TRANSPLANT

REACTIONS (3)
  - CEREBRAL INFARCTION [None]
  - HEPATIC VEIN THROMBOSIS [None]
  - WHITE CLOT SYNDROME [None]
